FAERS Safety Report 13191763 (Version 2)
Quarter: 2017Q1

REPORT INFORMATION
  Report Type: Spontaneous
  Country: US (occurrence: US)
  Receive Date: 20170207
  Receipt Date: 20170210
  Transmission Date: 20170428
  Serious: No
  Sender: FDA-Public Use
  Company Number: US-GILEAD-2017-0256723

PATIENT
  Age: 84 Year
  Sex: Female
  Weight: 100.7 kg

DRUGS (10)
  1. REVATIO [Suspect]
     Active Substance: SILDENAFIL CITRATE
     Indication: PULMONARY ARTERIAL HYPERTENSION
     Dosage: 20 MG, TID
     Route: 048
     Dates: start: 201205
  2. CARVEDILOL. [Concomitant]
     Active Substance: CARVEDILOL
  3. AMBRISENTAN [Suspect]
     Active Substance: AMBRISENTAN
     Indication: PULMONARY ARTERIAL HYPERTENSION
     Dosage: 5 MG, QD
     Route: 048
     Dates: start: 2012
  4. TORSEMIDE. [Concomitant]
     Active Substance: TORSEMIDE
  5. PRAVASTATIN. [Concomitant]
     Active Substance: PRAVASTATIN
  6. GLIMEPIRIDE. [Concomitant]
     Active Substance: GLIMEPIRIDE
  7. VESICARE [Concomitant]
     Active Substance: SOLIFENACIN SUCCINATE
  8. POTASSIUM [Concomitant]
     Active Substance: POTASSIUM
  9. BABY ASPIRIN [Concomitant]
     Active Substance: ASPIRIN
  10. IMIPRAMINE [Concomitant]
     Active Substance: IMIPRAMINE

REACTIONS (3)
  - Blood potassium decreased [Unknown]
  - Memory impairment [Not Recovered/Not Resolved]
  - Drug dose omission [Not Recovered/Not Resolved]
